FAERS Safety Report 7204815-6 (Version None)
Quarter: 2010Q4

REPORT INFORMATION
  Report Type: 
  Country: None (occurrence: None)
  Receive Date: 20101230
  Receipt Date: 20101221
  Transmission Date: 20110411
  Serious: Yes (Other)
  Sender: FDA-Public Use
  Company Number: US-PFIZER INC-2010176809

PATIENT
  Sex: Female
  Weight: 63.492 kg

DRUGS (4)
  1. EFFEXOR XR [Suspect]
     Indication: DEPRESSION
     Dosage: 150 MG, 1X/DAY
     Route: 048
     Dates: start: 19950101, end: 20101201
  2. DILTIAZEM [Concomitant]
     Indication: CARDIAC DISORDER
     Dosage: 120 MG, UNK
  3. CELEXA [Concomitant]
     Indication: BIPOLAR DISORDER
     Dosage: 40 MG, UNK
  4. TRICOR [Concomitant]
     Indication: BLOOD CHOLESTEROL INCREASED
     Dosage: UNK

REACTIONS (2)
  - EYE DISORDER [None]
  - VISUAL IMPAIRMENT [None]
